FAERS Safety Report 8241782-0 (Version None)
Quarter: 2012Q1

REPORT INFORMATION
  Report Type: 
  Country: None (occurrence: None)
  Receive Date: 20120328
  Receipt Date: 20120321
  Transmission Date: 20120608
  Serious: Yes (Other)
  Sender: FDA-Public Use
  Company Number: US-ELI_LILLY_AND_COMPANY-US201203006187

PATIENT
  Sex: Male

DRUGS (2)
  1. BYDUREON [Suspect]
     Dosage: 2 MG, SINGLE
     Route: 058
  2. VICTOZA [Concomitant]

REACTIONS (1)
  - JAUNDICE [None]
